FAERS Safety Report 5015756-7 (Version None)
Quarter: 2006Q2

REPORT INFORMATION
  Report Type: 
  Country: None (occurrence: None)
  Receive Date: 20060525
  Receipt Date: 20060509
  Transmission Date: 20061013
  Serious: Yes (Hospitalization)
  Sender: FDA-Public Use
  Company Number: FR200605001955

PATIENT
  Age: 68 Year
  Sex: Female
  Weight: 82 kg

DRUGS (5)
  1. ZYPREXA [Suspect]
     Indication: MENTAL DISORDER
     Dosage: ORAL
     Route: 048
     Dates: end: 20060301
  2. LEVOTHYROXINE SODIUM [Concomitant]
  3. LANTUS [Concomitant]
  4. TRANXENE (CLORAZEPATE DIPOTASSIUM) CAPSULE [Concomitant]
  5. KARDEGIC/FRA/ACETYLSALICYLATE LYSINE) [Concomitant]

REACTIONS (12)
  - BRONCHOPNEUMOPATHY [None]
  - CONFUSIONAL STATE [None]
  - DEPRESSED LEVEL OF CONSCIOUSNESS [None]
  - DIABETES MELLITUS [None]
  - DISORIENTATION [None]
  - FALL [None]
  - HYPERTHERMIA [None]
  - HYPERTONIA [None]
  - INFLAMMATION [None]
  - MENTAL DISORDER [None]
  - MYALGIA [None]
  - NEUROLEPTIC MALIGNANT SYNDROME [None]
